FAERS Safety Report 9593636 (Version 1)
Quarter: 2013Q4

REPORT INFORMATION
  Report Type: Report from Study
  Country: US (occurrence: US)
  Receive Date: 20131004
  Receipt Date: 20131004
  Transmission Date: 20140711
  Serious: No
  Sender: FDA-Public Use
  Company Number: US-ALEXION-A201302399

PATIENT
  Sex: Female

DRUGS (1)
  1. SOLIRIS [Suspect]
     Indication: PAROXYSMAL NOCTURNAL HAEMOGLOBINURIA
     Dosage: UNK
     Route: 042

REACTIONS (7)
  - Dysphagia [Unknown]
  - Pain [Unknown]
  - Abdominal discomfort [Unknown]
  - Dyspnoea [Unknown]
  - Asthenia [Unknown]
  - Abdominal pain [Unknown]
  - Headache [Unknown]
